FAERS Safety Report 9136175 (Version 1)
Quarter: 2013Q1

REPORT INFORMATION
  Report Type: Spontaneous
  Country: US (occurrence: US)
  Receive Date: 20130304
  Receipt Date: 20130304
  Transmission Date: 20140127
  Serious: Yes (Other)
  Sender: FDA-Public Use
  Company Number: US-GLAXOSMITHKLINE-A1007843A

PATIENT
  Sex: Male

DRUGS (2)
  1. PROMACTA [Suspect]
     Route: 048
  2. MULTIPLE MEDICATIONS [Concomitant]

REACTIONS (2)
  - Splenectomy [Unknown]
  - Platelet count decreased [Unknown]
